FAERS Safety Report 7998269-X (Version None)
Quarter: 2011Q4

REPORT INFORMATION
  Report Type: 
  Country: None (occurrence: None)
  Receive Date: 20111221
  Receipt Date: 20110602
  Transmission Date: 20120403
  Serious: No
  Sender: FDA-Public Use
  Company Number: US-GLAXOSMITHKLINE-A0930076A

PATIENT
  Age: 64 Year
  Sex: Female

DRUGS (3)
  1. WELLBUTRIN [Concomitant]
  2. LOVAZA [Suspect]
     Indication: BLOOD TRIGLYCERIDES INCREASED
     Dosage: 4CAP PER DAY
     Route: 048
     Dates: start: 20110522, end: 20110531
  3. DIAZEPAM [Concomitant]

REACTIONS (2)
  - DIARRHOEA [None]
  - ABDOMINAL DISTENSION [None]
